FAERS Safety Report 15598015 (Version 1)
Quarter: 2018Q4

REPORT INFORMATION
  Report Type: Spontaneous
  Country: US (occurrence: US)
  Receive Date: 20181108
  Receipt Date: 20181108
  Transmission Date: 20190205
  Serious: Yes (Other)
  Sender: FDA-Public Use
  Company Number: US-BAYER-2018-205759

PATIENT
  Age: 84 Year
  Sex: Female
  Weight: 91 kg

DRUGS (1)
  1. AFRIN ORIGINAL [Suspect]
     Active Substance: OXYMETAZOLINE HYDROCHLORIDE
     Dosage: UNK
     Route: 055
     Dates: start: 1968

REACTIONS (3)
  - Product package associated injury [Unknown]
  - Drug dependence [Unknown]
  - Product use complaint [None]

NARRATIVE: CASE EVENT DATE: 1968
